FAERS Safety Report 11333161 (Version 1)
Quarter: 2015Q3

REPORT INFORMATION
  Report Type: Spontaneous
  Country: US (occurrence: US)
  Receive Date: 20150803
  Receipt Date: 20150803
  Transmission Date: 20151125
  Serious: No
  Sender: FDA-Public Use
  Company Number: US-ELI_LILLY_AND_COMPANY-US200710007235

PATIENT
  Age: 43 Year
  Sex: Male

DRUGS (6)
  1. NEURONTIN [Concomitant]
     Active Substance: GABAPENTIN
  2. CLOMIPRAMINE [Concomitant]
     Active Substance: CLOMIPRAMINE
  3. GEODON [Concomitant]
     Active Substance: ZIPRASIDONE HYDROCHLORIDE\ZIPRASIDONE MESYLATE
  4. ZYPREXA [Suspect]
     Active Substance: OLANZAPINE
     Indication: ABNORMAL BEHAVIOUR
     Dosage: 15 MG, 3/D
     Route: 048
     Dates: start: 20071020
  5. DEPAKOTE [Concomitant]
     Active Substance: DIVALPROEX SODIUM
  6. FOLIC ACID. [Concomitant]
     Active Substance: FOLIC ACID

REACTIONS (3)
  - Abnormal behaviour [Not Recovered/Not Resolved]
  - Prescribed overdose [Not Recovered/Not Resolved]
  - Muscle rigidity [Not Recovered/Not Resolved]

NARRATIVE: CASE EVENT DATE: 200710
